FAERS Safety Report 19928100 (Version 1)
Quarter: 2021Q4

REPORT INFORMATION
  Report Type: Spontaneous
  Country: US (occurrence: US)
  Receive Date: 20211006
  Receipt Date: 20211006
  Transmission Date: 20220303
  Serious: Yes (Other)
  Sender: FDA-Public Use
  Company Number: None

PATIENT
  Age: 63 Year
  Sex: Female
  Weight: 87.1 kg

DRUGS (22)
  1. ACTEMRA [Suspect]
     Active Substance: TOCILIZUMAB
     Indication: Acute respiratory failure
     Dosage: OTHER FREQUENCY:ONCE;
     Route: 042
     Dates: start: 20210930, end: 20210930
  2. TRAMADOL [Concomitant]
     Active Substance: TRAMADOL
     Dates: start: 20210928
  3. ALBUTEROL [Concomitant]
     Active Substance: ALBUTEROL
     Dates: start: 20210928
  4. AMLODIPINE [Concomitant]
     Active Substance: AMLODIPINE BESYLATE
     Dates: start: 20210929
  5. CARBAMAZEPINE [Concomitant]
     Active Substance: CARBAMAZEPINE
     Dates: start: 20210928
  6. CLONAZEPAM [Concomitant]
     Active Substance: CLONAZEPAM
     Dates: start: 20211002
  7. CLONIDINE [Concomitant]
     Active Substance: CLONIDINE
     Dates: start: 20210928
  8. DEXAMETHASONE [Concomitant]
     Active Substance: DEXAMETHASONE
     Dates: start: 20210928
  9. DULOXETINE [Concomitant]
     Active Substance: DULOXETINE
     Dates: start: 20210928
  10. FUROSEMIDE [Concomitant]
     Active Substance: FUROSEMIDE
     Dates: start: 20211001
  11. GUAIFENESIN [Concomitant]
     Active Substance: GUAIFENESIN
     Dates: start: 20210930
  12. HEPARIN [Concomitant]
     Active Substance: HEPARIN SODIUM
     Dates: start: 20211004
  13. INSULIN ASPART [Concomitant]
     Active Substance: INSULIN ASPART
     Dates: start: 20210929
  14. LOSARTAN [Concomitant]
     Active Substance: LOSARTAN
     Dates: start: 20210929
  15. MELATONIN [Concomitant]
     Active Substance: MELATONIN
     Dates: start: 20210928
  16. ONDANSETRON [Concomitant]
     Active Substance: ONDANSETRON
     Dates: start: 20210929
  17. PANTOPRAZOLE [Concomitant]
     Active Substance: PANTOPRAZOLE
     Dates: start: 20210928
  18. Polyethylene Glycol Electrolyte Solution [Concomitant]
     Dates: start: 20211002
  19. POTASSIUM CHLORIDE [Concomitant]
     Active Substance: POTASSIUM CHLORIDE
     Dates: start: 20210928
  20. QUETIAPINE [Concomitant]
     Active Substance: QUETIAPINE
     Dates: start: 20210928
  21. ROSUVASTATIN [Concomitant]
     Active Substance: ROSUVASTATIN
     Dates: start: 20210928
  22. SPIRONOLACTONE [Concomitant]
     Active Substance: SPIRONOLACTONE
     Dates: start: 20210929

REACTIONS (4)
  - Anticoagulation drug level below therapeutic [None]
  - Alanine aminotransferase increased [None]
  - Aspartate aminotransferase increased [None]
  - Deep vein thrombosis [None]

NARRATIVE: CASE EVENT DATE: 20211002
